FAERS Safety Report 6524970-0 (Version None)
Quarter: 2009Q4

REPORT INFORMATION
  Report Type: 
  Country: None (occurrence: None)
  Receive Date: 20091231
  Receipt Date: 20091231
  Transmission Date: 20100525
  Serious: Yes (Life-Threatening, Hospitalization)
  Sender: FDA-Public Use
  Company Number: None

PATIENT
  Sex: Female
  Weight: 73.6 kg

DRUGS (5)
  1. YAZ [Suspect]
     Indication: MUSCLE SPASMS
     Dosage: 3MG/0.02MG 28 TABLETS 1 DAILY 047
     Dates: start: 20090806, end: 20091120
  2. YAZ [Suspect]
     Indication: PREGNANCY ON CONTRACEPTIVE
     Dosage: 3MG/0.02MG 28 TABLETS 1 DAILY 047
     Dates: start: 20090806, end: 20091120
  3. EFFEXOR [Concomitant]
  4. WELLBUTRIN [Concomitant]
  5. LEVOTHYROXINE SODIUM [Concomitant]

REACTIONS (1)
  - PULMONARY EMBOLISM [None]
